FAERS Safety Report 25461369 (Version 1)
Quarter: 2025Q2

REPORT INFORMATION
  Report Type: Spontaneous
  Country: US (occurrence: None)
  Receive Date: 20250610
  Receipt Date: 20250610
  Transmission Date: 20250717
  Serious: Yes (unspecified)
  Sender: FDA-CTU
  Company Number: None

PATIENT
  Age: 6 Month
  Sex: Male
  Weight: 8.1 kg

DRUGS (1)
  1. UNSPECIFIED INGREDIENT [Suspect]
     Active Substance: UNSPECIFIED INGREDIENT
     Indication: Teething
     Route: 048
     Dates: start: 20250310, end: 20250608

REACTIONS (2)
  - Ear infection [None]
  - Diarrhoea [None]

NARRATIVE: CASE EVENT DATE: 20250607
